FAERS Safety Report 10199682 (Version 2)
Quarter: 2014Q2

REPORT INFORMATION
  Report Type: Spontaneous
  Country: US (occurrence: US)
  Receive Date: 20140527
  Receipt Date: 20140620
  Transmission Date: 20141212
  Serious: Yes (Other)
  Sender: FDA-Public Use
  Company Number: CHPA2014US006914

PATIENT
  Age: 68 Year
  Sex: Female

DRUGS (10)
  1. GAS-X ULTRA STRENGTH [Suspect]
     Indication: ABDOMINAL DISTENSION
     Dosage: 2 UNK, AS NEEDED
     Route: 048
  2. GAS-X ULTRA STRENGTH [Suspect]
     Indication: ABDOMINAL DISCOMFORT
  3. GAS-X ULTRA STRENGTH [Suspect]
     Indication: OFF LABEL USE
  4. MIRALAX [Concomitant]
     Indication: BOWEL MOVEMENT IRREGULARITY
  5. COLACE [Concomitant]
     Indication: BOWEL MOVEMENT IRREGULARITY
  6. BUPROPION HCL [Concomitant]
     Dosage: 200 MG, BID
  7. ROLAIDS [Concomitant]
     Indication: ABDOMINAL DISCOMFORT
     Dosage: UNK, PRN
     Route: 048
  8. PRILOSEC [Concomitant]
  9. ESTRING [Concomitant]
     Indication: HYSTERECTOMY
  10. VAGIFEM [Concomitant]
     Indication: HYSTERECTOMY

REACTIONS (6)
  - Depression [Recovering/Resolving]
  - Irritable bowel syndrome [Recovering/Resolving]
  - Hallucination [Recovered/Resolved]
  - Anxiety [Recovering/Resolving]
  - Gastrooesophageal reflux disease [Recovering/Resolving]
  - Insomnia [Recovered/Resolved]
